FAERS Safety Report 7299070-5 (Version None)
Quarter: 2011Q1

REPORT INFORMATION
  Report Type: 
  Country: None (occurrence: None)
  Receive Date: 20110217
  Receipt Date: 20110214
  Transmission Date: 20110831
  Serious: Yes (Hospitalization)
  Sender: FDA-Public Use
  Company Number: IT-ABBOTT-11P-083-0705632-00

PATIENT
  Age: 31 Year
  Sex: Female

DRUGS (2)
  1. DOSTINEX [Suspect]
     Indication: ADENOMA BENIGN
     Route: 048
     Dates: start: 20110125, end: 20110201
  2. DEPAKENE [Suspect]
     Indication: EPILEPSY
     Route: 048
     Dates: start: 20100101, end: 20110205

REACTIONS (1)
  - ANTEPARTUM HAEMORRHAGE [None]
